FAERS Safety Report 26180346 (Version 1)
Quarter: 2025Q4

REPORT INFORMATION
  Report Type: Spontaneous
  Country: US (occurrence: US)
  Receive Date: 20251219
  Receipt Date: 20251219
  Transmission Date: 20260118
  Serious: No
  Sender: MYLAN
  Company Number: US-MYLANLABS-2025M1105493

PATIENT
  Age: 63 Year
  Sex: Female

DRUGS (3)
  1. ESTRADIOL TRANSDERMAL SYSTEM [Suspect]
     Active Substance: ESTRADIOL
     Indication: Hot flush
     Dosage: 0.1 MILLIGRAM, QD (PER DAY, ONCE WEEKLY)
     Dates: start: 2024
  2. ESTRADIOL TRANSDERMAL SYSTEM [Suspect]
     Active Substance: ESTRADIOL
     Indication: Osteopenia
  3. PROGESTERONE [Concomitant]
     Active Substance: PROGESTERONE
     Dosage: UNK (HALF OF THE MONTH, FOR 14 DAYS AND THEN 14 DAYS OFF)
     Route: 061

REACTIONS (3)
  - Therapeutic product effect decreased [Unknown]
  - Poor quality product administered [Unknown]
  - Suspected product quality issue [Unknown]

NARRATIVE: CASE EVENT DATE: 20250401
